FAERS Safety Report 7187086-9 (Version None)
Quarter: 2010Q4

REPORT INFORMATION
  Report Type: 
  Country: None (occurrence: None)
  Receive Date: 20101222
  Receipt Date: 20100910
  Transmission Date: 20110411
  Serious: No
  Sender: FDA-Public Use
  Company Number: US-AMGEN-TCS417632

PATIENT

DRUGS (2)
  1. ENBREL [Suspect]
     Indication: PSORIASIS
     Dosage: 50 MG, QWK
     Route: 058
     Dates: start: 20100204
  2. DIAZEPAM [Concomitant]
     Dosage: 2 MG, PRN
     Dates: start: 20090901

REACTIONS (4)
  - ABDOMINAL TENDERNESS [None]
  - COUGH [None]
  - NASOPHARYNGITIS [None]
  - SINUS CONGESTION [None]
